FAERS Safety Report 11948142 (Version 1)
Quarter: 2016Q1

REPORT INFORMATION
  Report Type: Spontaneous
  Country: FR (occurrence: FR)
  Receive Date: 20160125
  Receipt Date: 20160125
  Transmission Date: 20160526
  Serious: Yes (Death, Other)
  Sender: FDA-Public Use
  Company Number: FR-BAYER-2016-009455

PATIENT
  Age: 19 Year
  Sex: Female

DRUGS (3)
  1. TRIMEBUTINE [Suspect]
     Active Substance: TRIMEBUTINE
  2. PARACETAMOL [Suspect]
     Active Substance: ACETAMINOPHEN
  3. ACETYLSALICYLIC ACID (} 100 MG) [Suspect]
     Active Substance: ASPIRIN

REACTIONS (11)
  - Bradycardia [None]
  - Ventricular fibrillation [None]
  - Miosis [None]
  - Pyramidal tract syndrome [None]
  - Intentional overdose [None]
  - Brain injury [Fatal]
  - Pneumonia aspiration [None]
  - Nervous system disorder [Fatal]
  - Seizure [None]
  - Cardio-respiratory arrest [None]
  - Toxicity to various agents [None]
